FAERS Safety Report 7704536-7 (Version None)
Quarter: 2011Q3

REPORT INFORMATION
  Report Type: 
  Country: None (occurrence: None)
  Receive Date: 20110823
  Receipt Date: 20110805
  Transmission Date: 20111222
  Serious: Yes (Hospitalization)
  Sender: FDA-Public Use
  Company Number: US-GLAXOSMITHKLINE-A0863739A

PATIENT
  Age: 50 Year
  Sex: Male
  Weight: 104.5 kg

DRUGS (4)
  1. VYTORIN [Concomitant]
  2. GEMFIBROZIL [Concomitant]
  3. AVANDIA [Suspect]
     Indication: DIABETES MELLITUS
     Dosage: 4MG PER DAY
     Route: 048
     Dates: start: 19990501, end: 20090101
  4. GLYBURIDE AND METFORMIN HYDROCHLORIDE [Concomitant]

REACTIONS (5)
  - PAIN [None]
  - ECONOMIC PROBLEM [None]
  - DYSPNOEA EXERTIONAL [None]
  - MYOCARDIAL INFARCTION [None]
  - SURGERY [None]
